FAERS Safety Report 20893460 (Version 2)
Quarter: 2022Q3

REPORT INFORMATION
  Report Type: Report from Study
  Country: US (occurrence: US)
  Receive Date: 20220531
  Receipt Date: 20220711
  Transmission Date: 20221027
  Serious: Yes (Other)
  Sender: FDA-Public Use
  Company Number: US-CELGENE-USA-20220303506

PATIENT
  Age: 64 Year
  Sex: Female

DRUGS (2)
  1. ZEPOSIA [Suspect]
     Active Substance: OZANIMOD HYDROCHLORIDE
     Indication: Multiple sclerosis
     Dosage: .92 MILLIGRAM
     Route: 048
     Dates: start: 20210205
  2. ZEPOSIA [Suspect]
     Active Substance: OZANIMOD HYDROCHLORIDE

REACTIONS (17)
  - Thyroid cyst [Not Recovered/Not Resolved]
  - Pain [Not Recovered/Not Resolved]
  - Epstein-Barr virus infection [Not Recovered/Not Resolved]
  - Genital herpes [Not Recovered/Not Resolved]
  - Vaginal haemorrhage [Not Recovered/Not Resolved]
  - Rotator cuff syndrome [Not Recovered/Not Resolved]
  - Bone cyst [Not Recovered/Not Resolved]
  - Asthenia [Not Recovered/Not Resolved]
  - Fall [Not Recovered/Not Resolved]
  - Frontal lobe epilepsy [Recovering/Resolving]
  - Multiple sclerosis relapse [Not Recovered/Not Resolved]
  - Musculoskeletal discomfort [Unknown]
  - Urinary incontinence [Unknown]
  - Bone pain [Unknown]
  - Depression [Not Recovered/Not Resolved]
  - Cyst [Not Recovered/Not Resolved]
  - Tooth disorder [Not Recovered/Not Resolved]

NARRATIVE: CASE EVENT DATE: 20220201
